FAERS Safety Report 5489370-3 (Version None)
Quarter: 2007Q4

REPORT INFORMATION
  Report Type: 
  Country: None (occurrence: None)
  Receive Date: 20071018
  Receipt Date: 20071012
  Transmission Date: 20080405
  Serious: Yes (Other)
  Sender: FDA-Public Use
  Company Number: CA-ASTRAZENECA-2007UW23881

PATIENT
  Age: 70 Year
  Sex: Male

DRUGS (9)
  1. SEROQUEL [Suspect]
     Route: 048
  2. BUPROPION HCL [Suspect]
     Route: 048
  3. ARANESP [Concomitant]
     Route: 042
  4. CALCIUM CARBONATE [Concomitant]
  5. DOCUSATE [Concomitant]
  6. LACTULOSE [Concomitant]
  7. METOPROLOL [Concomitant]
  8. RANITIDINE HCL [Concomitant]
  9. REPLAVITE [Concomitant]

REACTIONS (5)
  - ALANINE AMINOTRANSFERASE INCREASED [None]
  - ASPARTATE AMINOTRANSFERASE INCREASED [None]
  - BLOOD ALKALINE PHOSPHATASE INCREASED [None]
  - BLOOD BILIRUBIN INCREASED [None]
  - LIVER FUNCTION TEST ABNORMAL [None]
